FAERS Safety Report 10723924 (Version 1)
Quarter: 2015Q1

REPORT INFORMATION
  Report Type: Spontaneous
  Country: US (occurrence: None)
  Receive Date: 20150115
  Receipt Date: 20150115
  Transmission Date: 20150721
  Serious: Yes (Hospitalization, Other)
  Sender: FDA-Public Use
  Company Number: ADR-2015-00063

PATIENT
  Age: 35 Year
  Sex: Male

DRUGS (4)
  1. FENTANYL INTRATHECAL [Suspect]
     Active Substance: FENTANYL
  2. BUPIVACAINE INTRATHECAL [Suspect]
     Active Substance: BUPIVACAINE
  3. MORPHINE INTRATHECAL [Suspect]
     Active Substance: MORPHINE
     Indication: SPINAL PAIN
  4. BACLOFEN INTRATHECAL [Suspect]
     Active Substance: BACLOFEN
     Indication: SPINAL PAIN

REACTIONS (2)
  - Paraplegia [None]
  - Device failure [None]

NARRATIVE: CASE EVENT DATE: 20150105
